FAERS Safety Report 8574344 (Version 3)
Quarter: 2012Q4

REPORT INFORMATION
  Report Type: 
  Country: US (occurrence: US)
  Receive Date: 20120522
  Receipt Date: 20120912
  Transmission Date: 20130627
  Serious: Yes (Other)
  Sender: FDA-Public Use
  Company Number: US-PFIZER INC-2012120897

PATIENT
  Age: 57 Year
  Sex: Female
  Weight: 59.41 kg

DRUGS (13)
  1. LYRICA [Suspect]
     Indication: FIBROMYALGIA
     Dosage: 50 mg, 2x/day
  2. LYRICA [Suspect]
     Dosage: 150 mg, 2x/day
     Route: 048
  3. DOXEPIN HCL [Suspect]
     Indication: SLEEP DISORDER
     Dosage: 50 mg, daily at night
  4. GABAPENTIN [Suspect]
     Indication: FIBROMYALGIA
     Dosage: UNK
  5. ULTRAM [Suspect]
     Indication: PAIN
     Dosage: UNK
     Dates: start: 201205
  6. NEXIUM [Concomitant]
     Indication: GASTROOESOPHAGEAL REFLUX DISEASE
     Dosage: 50 mg, daily
  7. FLEXERIL [Concomitant]
     Dosage: UNK, 2x/day
  8. PREMARIN [Concomitant]
     Dosage: UNK, daily
  9. CELEXA [Concomitant]
     Dosage: UNK
  10. TESSALON [Concomitant]
     Dosage: UNK
  11. ESTRADIOL [Concomitant]
     Dosage: UNK
  12. METFORMIN [Concomitant]
     Dosage: UNK
  13. AMARYL [Concomitant]

REACTIONS (5)
  - Diabetes mellitus [Unknown]
  - Drug ineffective [Unknown]
  - Fibromyalgia [Not Recovered/Not Resolved]
  - Pain [Unknown]
  - Fall [Unknown]
